FAERS Safety Report 25184370 (Version 1)
Quarter: 2025Q2

REPORT INFORMATION
  Report Type: Spontaneous
  Country: US (occurrence: None)
  Receive Date: 20250409
  Receipt Date: 20250409
  Transmission Date: 20250716
  Serious: No
  Sender: FDA-CTU
  Company Number: None

PATIENT
  Age: 29 Year
  Sex: Male
  Weight: 92 kg

DRUGS (1)
  1. TIRZEPATIDE [Suspect]
     Active Substance: TIRZEPATIDE
     Indication: Diabetes mellitus
     Route: 058

REACTIONS (3)
  - Abdominal pain upper [None]
  - Diarrhoea [None]
  - Therapy interrupted [None]

NARRATIVE: CASE EVENT DATE: 20060101
